FAERS Safety Report 6845769-1 (Version None)
Quarter: 2010Q3

REPORT INFORMATION
  Report Type: 
  Country: None (occurrence: None)
  Receive Date: 20100715
  Receipt Date: 20071030
  Transmission Date: 20110219
  Serious: No
  Sender: FDA-Public Use
  Company Number: US-PFIZER INC-2007070493

PATIENT
  Sex: Female
  Weight: 74.8 kg

DRUGS (5)
  1. CHANTIX [Suspect]
     Indication: SMOKING CESSATION THERAPY
     Dates: start: 20070401
  2. DEPAKOTE [Concomitant]
  3. KLONOPIN [Concomitant]
  4. THORAZINE [Concomitant]
  5. ZOLOFT [Concomitant]

REACTIONS (4)
  - ABNORMAL DREAMS [None]
  - DRUG INEFFECTIVE [None]
  - INSOMNIA [None]
  - MIGRAINE [None]
